FAERS Safety Report 22095591 (Version 2)
Quarter: 2023Q1

REPORT INFORMATION
  Report Type: Spontaneous
  Country: CH (occurrence: CH)
  Receive Date: 20230314
  Receipt Date: 20230323
  Transmission Date: 20230418
  Serious: Yes (Hospitalization)
  Sender: FDA-Public Use
  Company Number: None

PATIENT
  Age: 48 Year
  Sex: Male

DRUGS (49)
  1. LORAZEPAM [Suspect]
     Active Substance: LORAZEPAM
     Indication: Pain
     Dosage: 1 MG, AS NEEDED
     Route: 065
     Dates: end: 202211
  2. LORAZEPAM [Suspect]
     Active Substance: LORAZEPAM
     Dosage: 2 MG MAX 4X/DAY , AS NEEDED
     Route: 065
     Dates: start: 202211, end: 20230221
  3. LORAZEPAM [Suspect]
     Active Substance: LORAZEPAM
     Dosage: 2 MG, 4X/DAY
     Route: 065
     Dates: start: 20230222, end: 20230222
  4. LORAZEPAM [Suspect]
     Active Substance: LORAZEPAM
     Dosage: 2 MG, 5X/DAY
     Route: 065
     Dates: start: 20230223, end: 20230223
  5. LORAZEPAM [Suspect]
     Active Substance: LORAZEPAM
     Dosage: 2 MG, 7X/DAY
     Route: 065
     Dates: start: 20230224, end: 20230224
  6. LORAZEPAM [Suspect]
     Active Substance: LORAZEPAM
     Dosage: 2 MG, 5X/DAY
     Route: 065
     Dates: start: 20230225, end: 20230225
  7. LORAZEPAM [Suspect]
     Active Substance: LORAZEPAM
     Dosage: 2.5 MG, 3X/DAY
     Route: 065
     Dates: start: 20230226, end: 20230226
  8. LORAZEPAM [Suspect]
     Active Substance: LORAZEPAM
     Dosage: 2.5 MG, 4X/DAY
     Route: 065
     Dates: start: 20230227, end: 20230227
  9. LORAZEPAM [Suspect]
     Active Substance: LORAZEPAM
     Dosage: 2.5 MG, 5X/DAY
     Route: 065
     Dates: start: 20230228, end: 20230228
  10. LORAZEPAM [Suspect]
     Active Substance: LORAZEPAM
     Dosage: 2.5 MG, 4X/DAY
     Route: 065
     Dates: start: 20230301, end: 20230301
  11. LORAZEPAM [Suspect]
     Active Substance: LORAZEPAM
     Dosage: 2 MG, 1X/DAY
     Route: 065
     Dates: start: 20230302
  12. PREGABALIN [Suspect]
     Active Substance: PREGABALIN
     Indication: Pain
     Dosage: 25 MG, 1X/DAY
     Route: 065
     Dates: end: 202211
  13. PREGABALIN [Suspect]
     Active Substance: PREGABALIN
     Dosage: 75 MG, 1X/DAY
     Route: 065
     Dates: start: 202212, end: 202212
  14. PREGABALIN [Suspect]
     Active Substance: PREGABALIN
     Dosage: 100 MILLIGRAM
     Route: 065
     Dates: start: 202301, end: 20230127
  15. PREGABALIN [Suspect]
     Active Substance: PREGABALIN
     Dosage: UNK
     Route: 065
     Dates: start: 20230128, end: 20230223
  16. PREGABALIN [Suspect]
     Active Substance: PREGABALIN
     Dosage: UNK
     Route: 065
     Dates: start: 20230224, end: 20230224
  17. PREGABALIN [Suspect]
     Active Substance: PREGABALIN
     Dosage: 200 MG, 1X/DAY
     Route: 065
     Dates: start: 20230225, end: 20230225
  18. PREGABALIN [Suspect]
     Active Substance: PREGABALIN
     Dosage: 100 MG, 1X/DAY
     Route: 065
     Dates: start: 20230226, end: 20230226
  19. PREGABALIN [Suspect]
     Active Substance: PREGABALIN
     Dosage: 225 MG, 1X/DAY
     Route: 065
     Dates: start: 20230227, end: 20230227
  20. PREGABALIN [Suspect]
     Active Substance: PREGABALIN
     Dosage: UNK
     Route: 065
     Dates: start: 20230228
  21. PREGABALIN [Suspect]
     Active Substance: PREGABALIN
     Dosage: 75 MILLIGRAM, QD (1X/DAY (REDUCED TO 75 MG 1X/DAY))
     Route: 065
     Dates: start: 20230202
  22. PREGABALIN [Suspect]
     Active Substance: PREGABALIN
     Dosage: 125 MILLIGRAM, 1X/ DAY
     Route: 065
  23. FENTANYL [Suspect]
     Active Substance: FENTANYL
     Indication: Pain
     Dosage: PCA PUMP (SEVERAL BOLUSES OF FENTANYL ARE ADMINISTERED BETWEEN 24 AND 26FEB)
     Route: 042
     Dates: end: 20230226
  24. ZOLPIDEM [Suspect]
     Active Substance: ZOLPIDEM TARTRATE
     Indication: Pain
     Dosage: UNK
     Route: 042
     Dates: end: 20230225
  25. ZOLPIDEM [Suspect]
     Active Substance: ZOLPIDEM TARTRATE
     Dosage: 10 MG/DAY + 10 MG PRN DOSES
     Route: 042
     Dates: start: 20230226, end: 20230226
  26. ZOLPIDEM [Suspect]
     Active Substance: ZOLPIDEM TARTRATE
     Dosage: UNK, AS NEEDED (MAX 1X/DAY)
     Route: 042
     Dates: end: 20230225
  27. ZOLPIDEM [Suspect]
     Active Substance: ZOLPIDEM TARTRATE
     Dosage: 10 MILLIGRAM (1X/DAY + MAX 1X/DAY PRN LORAZEPAM )
     Route: 042
     Dates: start: 20230227
  28. ATARAX [Suspect]
     Active Substance: HYDROXYZINE HYDROCHLORIDE
     Indication: Pain
     Dosage: 25 MG, AS NEEDED (MAX 1XDAY)
     Route: 065
     Dates: end: 20230221
  29. ATARAX [Suspect]
     Active Substance: HYDROXYZINE HYDROCHLORIDE
     Dosage: UNK, 1X/DAY  (25-75 MG/D BETWEEN 22FEB AND 01MAR)
     Route: 065
     Dates: start: 20230222, end: 20230301
  30. ATARAX [Suspect]
     Active Substance: HYDROXYZINE HYDROCHLORIDE
     Dosage: 25 MG, AS NEEDED (MAX 1X/DAY)
     Dates: start: 20230302
  31. SUBUTEX [Concomitant]
     Active Substance: BUPRENORPHINE HYDROCHLORIDE
     Indication: Analgesic therapy
     Dosage: UNK
     Route: 065
     Dates: end: 20230213
  32. SUBUTEX [Concomitant]
     Active Substance: BUPRENORPHINE HYDROCHLORIDE
     Dosage: UNK, (2 MG 1X/8H + 0.8 MG MAX 3X/DAY PRN)
     Route: 065
     Dates: start: 20230227
  33. CYMBALTA [Concomitant]
     Active Substance: DULOXETINE HYDROCHLORIDE
     Indication: Adjustment disorder with depressed mood
     Dosage: 30 MG, 1X/DAY
     Route: 065
     Dates: start: 20230123
  34. DAFALGAN [Concomitant]
     Active Substance: ACETAMINOPHEN
     Dosage: UNK
     Route: 065
  35. CORDARONE [Concomitant]
     Active Substance: AMIODARONE HYDROCHLORIDE
     Dosage: UNK
     Route: 065
     Dates: start: 20221223
  36. METOPROLOL SUCCINATE [Concomitant]
     Active Substance: METOPROLOL SUCCINATE
     Dosage: UNK
     Route: 065
  37. ATORVASTATIN [Concomitant]
     Active Substance: ATORVASTATIN
     Dosage: UNK
     Route: 065
  38. ESOMEPRAZOLE MAGNESIUM [Concomitant]
     Active Substance: ESOMEPRAZOLE MAGNESIUM
     Dosage: UNK
     Route: 065
  39. HEPARIN [Concomitant]
     Active Substance: HEPARIN SODIUM
     Dosage: UNK
     Route: 065
  40. ZERBAXA [Concomitant]
     Active Substance: CEFTOLOZANE SULFATE\TAZOBACTAM SODIUM
     Dosage: UNK
     Route: 065
  41. MEROPENEM [Concomitant]
     Active Substance: MEROPENEM
     Dosage: UNK
     Route: 065
  42. ARANESP [Concomitant]
     Active Substance: DARBEPOETIN ALFA
     Dosage: UNK
     Route: 065
  43. TESTOVIRON [TESTOSTERONE ENANTHATE;TESTOSTERONE PROPIONATE] [Concomitant]
     Dosage: UNK
     Route: 065
  44. HYDROCORTISONE [Concomitant]
     Active Substance: HYDROCORTISONE
     Dosage: UNK
     Route: 065
  45. FERINJECT [Concomitant]
     Active Substance: FERRIC CARBOXYMALTOSE
     Dosage: UNK
     Route: 065
  46. VELTASSA [Concomitant]
     Active Substance: PATIROMER
     Dosage: UNK
     Route: 065
  47. NOVORAPID [Concomitant]
     Active Substance: INSULIN ASPART
     Dosage: UNK, AS NEEDED
     Route: 065
  48. MOVICOL [Concomitant]
     Active Substance: POLYETHYLENE GLYCOL 3350\POTASSIUM CHLORIDE\SODIUM BICARBONATE\SODIUM CHLORIDE
     Dosage: UNK UNK, AS NEEDED
     Route: 065
  49. ONDANSETRON [Concomitant]
     Active Substance: ONDANSETRON
     Dosage: UNK, AS NEEDED
     Route: 065

REACTIONS (9)
  - Somnolence [Unknown]
  - Dysarthria [Unknown]
  - Benzodiazepine drug level increased [Recovering/Resolving]
  - Decubitus ulcer [Unknown]
  - Monoparesis [Unknown]
  - Anxiety [Not Recovered/Not Resolved]
  - Therapeutic product ineffective for unapproved indication [Unknown]
  - Prescribed overdose [Unknown]
  - Drug ineffective [Unknown]

NARRATIVE: CASE EVENT DATE: 20230224
